FAERS Safety Report 22386679 (Version 1)
Quarter: 2023Q2

REPORT INFORMATION
  Report Type: Spontaneous
  Country: US (occurrence: US)
  Receive Date: 20230531
  Receipt Date: 20230531
  Transmission Date: 20230721
  Serious: Yes (Hospitalization, Other)
  Sender: FDA-Public Use
  Company Number: US-STRIDES ARCOLAB LIMITED-2023SP005412

PATIENT
  Age: 56 Year
  Sex: Female

DRUGS (20)
  1. TACROLIMUS [Suspect]
     Active Substance: TACROLIMUS
     Indication: Prophylaxis against graft versus host disease
     Dosage: UNK, RECEIVED AFTER ALLOGENEIC PERIPHERAL HAEMATOPOIETIC STEM CELL TRANSPLANT
     Route: 065
     Dates: start: 201905
  2. TACROLIMUS [Suspect]
     Active Substance: TACROLIMUS
     Dosage: UNK, THERAPY RESTARTED AFTER DISCONTINUED FOR A SHORT DURATION; DOSE UNKNOWN
     Route: 065
     Dates: start: 2019, end: 201908
  3. PREDNISOLONE [Suspect]
     Active Substance: PREDNISOLONE
     Indication: Acute graft versus host disease
     Dosage: 0.5 MILLIGRAM/KILOGRAM DAILY
     Route: 065
     Dates: start: 201908
  4. PREDNISOLONE [Suspect]
     Active Substance: PREDNISOLONE
     Dosage: 10 MILLIGRAM DAILY, TAPERED DOSE
     Route: 065
     Dates: start: 20190912
  5. FLUDARABINE [Suspect]
     Active Substance: FLUDARABINE PHOSPHATE
     Indication: Immunosuppressant drug therapy
     Dosage: UNK, RECEIVED UNDER CONDITIONING REGIMEN
     Route: 065
     Dates: start: 201905
  6. FLUDARABINE [Suspect]
     Active Substance: FLUDARABINE PHOSPHATE
     Indication: Allogenic stem cell transplantation
  7. MELPHALAN [Suspect]
     Active Substance: MELPHALAN
     Indication: Immunosuppressant drug therapy
     Dosage: UNK, RECEIVED UNDER CONDITIONING REGIMEN
     Route: 065
     Dates: start: 201905
  8. MELPHALAN [Suspect]
     Active Substance: MELPHALAN
     Indication: Allogenic stem cell transplantation
  9. ALEMTUZUMAB [Suspect]
     Active Substance: ALEMTUZUMAB
     Indication: Prophylaxis against graft versus host disease
     Dosage: UNK, RECEIVED AFTER ALLOGENEIC PERIPHERAL HAEMATOPOIETIC STEM CELL TRANSPLANT
     Route: 065
     Dates: start: 201905
  10. SIROLIMUS [Suspect]
     Active Substance: SIROLIMUS
     Indication: Prophylaxis against graft versus host disease
     Dosage: UNK, RECEIVED AFTER ALLOGENEIC PERIPHERAL HAEMATOPOIETIC STEM CELL TRANSPLANT
     Route: 065
     Dates: start: 2019
  11. METHYLPREDNISOLONE [Suspect]
     Active Substance: METHYLPREDNISOLONE
     Indication: Acute graft versus host disease
     Dosage: 1.6 MILLIGRAM/KILOGRAM
     Route: 065
     Dates: start: 201908
  12. RITUXIMAB [Suspect]
     Active Substance: RITUXIMAB
     Indication: Evidence based treatment
     Dosage: UNK (INTRAVENOUS INFUSION)
     Route: 042
     Dates: start: 201909, end: 201909
  13. RITUXIMAB [Suspect]
     Active Substance: RITUXIMAB
     Indication: Epstein-Barr viraemia
     Dosage: UNK (INTRAVENOUS INFUSION)
     Route: 042
     Dates: start: 2019, end: 2019
  14. OFATUMUMAB [Suspect]
     Active Substance: OFATUMUMAB
     Indication: Post transplant lymphoproliferative disorder
     Dosage: 300 MILLIGRAM
     Route: 065
     Dates: start: 2019, end: 2019
  15. OFATUMUMAB [Suspect]
     Active Substance: OFATUMUMAB
     Dosage: 1000 MILLIGRAM
     Route: 065
     Dates: start: 2019, end: 2019
  16. OFATUMUMAB [Suspect]
     Active Substance: OFATUMUMAB
     Dosage: 2000 MILLIGRAM
     Route: 065
     Dates: start: 2019
  17. VALACYCLOVIR [Concomitant]
     Active Substance: VALACYCLOVIR HYDROCHLORIDE
     Indication: Antiviral prophylaxis
     Dosage: UNK
     Route: 065
     Dates: start: 2019
  18. FLUCONAZOLE [Concomitant]
     Active Substance: FLUCONAZOLE
     Indication: Antifungal prophylaxis
     Dosage: UNK
     Route: 065
     Dates: start: 2019
  19. LETERMOVIR [Concomitant]
     Active Substance: LETERMOVIR
     Indication: Antiviral prophylaxis
     Dosage: UNK
     Route: 065
     Dates: start: 2019
  20. COTRIMOXAZOLE [Concomitant]
     Active Substance: SULFAMETHOXAZOLE\TRIMETHOPRIM
     Indication: Antibiotic prophylaxis
     Dosage: UNK
     Route: 065
     Dates: start: 2019

REACTIONS (6)
  - Post transplant lymphoproliferative disorder [Recovered/Resolved]
  - Septic shock [Unknown]
  - Klebsiella infection [Unknown]
  - Bacteraemia [Unknown]
  - Epstein-Barr virus infection [Recovered/Resolved]
  - Acute graft versus host disease [Unknown]

NARRATIVE: CASE EVENT DATE: 20190101
